FAERS Safety Report 25193268 (Version 3)
Quarter: 2025Q3

REPORT INFORMATION
  Report Type: Report from Study
  Country: US (occurrence: US)
  Receive Date: 20250414
  Receipt Date: 20250729
  Transmission Date: 20251020
  Serious: Yes (Other)
  Sender: ABBVIE
  Company Number: US-ABBVIE-6216230

PATIENT
  Age: 75 Year
  Sex: Male

DRUGS (2)
  1. RINVOQ [Suspect]
     Active Substance: UPADACITINIB
     Indication: Dermatitis atopic
     Route: 048
     Dates: start: 20241216
  2. RINVOQ [Suspect]
     Active Substance: UPADACITINIB
     Indication: Dermatitis atopic
     Route: 048
     Dates: end: 202505

REACTIONS (8)
  - Stent placement [Not Recovered/Not Resolved]
  - Deep brain stimulation [Not Recovered/Not Resolved]
  - Balance disorder [Unknown]
  - Device power source issue [Unknown]
  - Fine motor skill dysfunction [Unknown]
  - Blood pressure abnormal [Unknown]
  - Cardiac disorder [Unknown]
  - Pruritus [Unknown]

NARRATIVE: CASE EVENT DATE: 20250101
